FAERS Safety Report 6644954-1 (Version None)
Quarter: 2010Q1

REPORT INFORMATION
  Report Type: 
  Country: None (occurrence: None)
  Receive Date: 20100322
  Receipt Date: 20100310
  Transmission Date: 20100710
  Serious: Yes (Hospitalization, Other)
  Sender: FDA-Public Use
  Company Number: PHHY2008JP25470

PATIENT
  Sex: Female
  Weight: 52 kg

DRUGS (10)
  1. DIOVAN [Suspect]
     Indication: HYPERTENSION
     Dosage: 80 MG, QD
     Route: 048
     Dates: start: 20070827, end: 20090207
  2. DIOVAN [Suspect]
     Dosage: 80 MG, BID
     Route: 048
     Dates: start: 20090223
  3. NIVADIL [Concomitant]
     Indication: HYPERTENSION
     Dosage: 2 DF
     Route: 048
     Dates: start: 20070827
  4. PROLMON [Concomitant]
     Dosage: 6 DF
     Route: 048
     Dates: start: 20021203, end: 20091119
  5. PROHEPARUM [Concomitant]
     Dosage: 3 DF
     Route: 048
     Dates: start: 20021203, end: 20091119
  6. TAURINE [Concomitant]
     Dosage: 3 DF
     Route: 048
     Dates: start: 20021203, end: 20091119
  7. ACINON [Concomitant]
     Dosage: 2 DF
     Route: 048
     Dates: start: 20021203, end: 20091119
  8. MAGNESIUM OXIDE [Concomitant]
     Dosage: 3 G
     Route: 048
     Dates: start: 20021203
  9. EUGLUCON [Concomitant]
     Dosage: 2 DF
     Route: 048
     Dates: start: 20021203, end: 20091119
  10. NELBON [Concomitant]
     Dosage: 5 MG
     Route: 048
     Dates: start: 20090207, end: 20091119

REACTIONS (9)
  - ABASIA [None]
  - BLOOD GLUCOSE INCREASED [None]
  - BLOOD POTASSIUM INCREASED [None]
  - CELLULITIS [None]
  - HEPATIC CIRRHOSIS [None]
  - HYPOPROTEINAEMIA [None]
  - OEDEMA PERIPHERAL [None]
  - PAIN [None]
  - THERAPEUTIC RESPONSE DECREASED [None]
